FAERS Safety Report 21766166 (Version 4)
Quarter: 2023Q4

REPORT INFORMATION
  Report Type: Spontaneous
  Country: US (occurrence: US)
  Receive Date: 20221222
  Receipt Date: 20231215
  Transmission Date: 20240110
  Serious: Yes (Death, Other)
  Sender: FDA-Public Use
  Company Number: US-PFIZER INC-202101638040

PATIENT
  Age: 66 Year
  Sex: Female
  Weight: 78.912 kg

DRUGS (1)
  1. NIVESTYM [Suspect]
     Active Substance: FILGRASTIM-AAFI
     Dosage: UNK

REACTIONS (1)
  - Gallbladder cancer [Fatal]

NARRATIVE: CASE EVENT DATE: 20190701
